FAERS Safety Report 4820761-7 (Version None)
Quarter: 2005Q4

REPORT INFORMATION
  Report Type: 
  Country: None (occurrence: None)
  Receive Date: 20051104
  Receipt Date: 20050728
  Transmission Date: 20060501
  Serious: Yes (Hospitalization)
  Sender: FDA-Public Use
  Company Number: US-MERCK-0507USA04342

PATIENT
  Age: 47 Year
  Sex: Female

DRUGS (2)
  1. VIOXX [Suspect]
     Route: 065
     Dates: start: 19991101, end: 20010201
  2. AMARYL [Concomitant]
     Indication: DIABETES MELLITUS NON-INSULIN-DEPENDENT
     Route: 065
     Dates: start: 20000701

REACTIONS (10)
  - AORTIC VALVE INCOMPETENCE [None]
  - BRAIN OEDEMA [None]
  - CEREBRAL HAEMATOMA [None]
  - DIABETES MELLITUS NON-INSULIN-DEPENDENT [None]
  - DILATATION ATRIAL [None]
  - DILATATION VENTRICULAR [None]
  - HYPERTENSION [None]
  - PULMONARY VALVE INCOMPETENCE [None]
  - THALAMUS HAEMORRHAGE [None]
  - VISION BLURRED [None]
